FAERS Safety Report 15674682 (Version 1)
Quarter: 2018Q4

REPORT INFORMATION
  Report Type: Spontaneous
  Country: US (occurrence: US)
  Receive Date: 20181130
  Receipt Date: 20181130
  Transmission Date: 20190205
  Serious: Yes (Other)
  Sender: FDA-Public Use
  Company Number: US-APOTEX-2018AP025709

PATIENT
  Age: 70 Year
  Sex: Female

DRUGS (2)
  1. CEFEPIME [Suspect]
     Active Substance: CEFEPIME HYDROCHLORIDE
     Indication: MENINGITIS
     Dosage: 2 G, TID EVERY EIGHT HOURS
     Route: 042
  2. VANCOMYCIN HCL [Concomitant]
     Active Substance: VANCOMYCIN HYDROCHLORIDE
     Indication: MENINGITIS
     Dosage: UNK
     Route: 042

REACTIONS (3)
  - Encephalopathy [Unknown]
  - Opsoclonus myoclonus [Recovered/Resolved]
  - Neurotoxicity [Unknown]
